FAERS Safety Report 20416728 (Version 1)
Quarter: 2022Q1

REPORT INFORMATION
  Report Type: Report from Study
  Country: CN (occurrence: CN)
  Receive Date: 20220202
  Receipt Date: 20220202
  Transmission Date: 20220424
  Serious: Yes (Hospitalization)
  Sender: FDA-Public Use
  Company Number: CN-GSKJP-CN2022APC012295AA

PATIENT
  Age: 51 Year
  Sex: Male
  Weight: 54 kg

DRUGS (7)
  1. FLUTICASONE PROPIONATE\SALMETEROL XINAFOATE [Suspect]
     Active Substance: FLUTICASONE PROPIONATE\SALMETEROL XINAFOATE
     Indication: Asthma
     Dosage: 2 TIMES A DAY
     Route: 055
     Dates: start: 20211231
  2. LOXOPROFEN SODIUM [Suspect]
     Active Substance: LOXOPROFEN SODIUM
     Indication: Asthma
     Dosage: 60 MG, QD
     Route: 048
     Dates: start: 20210110
  3. LOXOPROFEN SODIUM [Suspect]
     Active Substance: LOXOPROFEN SODIUM
     Dosage: 60 UNK
     Dates: start: 20220110
  4. LOXOPROFEN SODIUM [Suspect]
     Active Substance: LOXOPROFEN SODIUM
     Dosage: 60 UNK
     Dates: start: 20220109
  5. MOMETASONE FUROATE AQUEOUS NASAL SPRAY [Concomitant]
     Indication: Sinusitis
     Dosage: 50 UG
     Dates: start: 2018
  6. CEFOTAXIME SODIUM [Concomitant]
     Active Substance: CEFOTAXIME SODIUM
     Dosage: UNK
     Dates: start: 20220108
  7. CEFOTAXIME SODIUM [Concomitant]
     Active Substance: CEFOTAXIME SODIUM
     Dosage: UNK
     Dates: start: 20220109

REACTIONS (1)
  - Asthma [Recovered/Resolved]

NARRATIVE: CASE EVENT DATE: 20220110
